FAERS Safety Report 15983898 (Version 1)
Quarter: 2019Q1

REPORT INFORMATION
  Report Type: Spontaneous
  Country: US (occurrence: US)
  Receive Date: 20190220
  Receipt Date: 20190220
  Transmission Date: 20190418
  Serious: Yes (Hospitalization, Other)
  Sender: FDA-Public Use
  Company Number: US-DRREDDYS-USA/USA/18/0097030

PATIENT
  Age: 74 Year
  Sex: Female

DRUGS (1)
  1. MINOCYCLINE HYDROCHLORIDE. [Suspect]
     Active Substance: MINOCYCLINE HYDROCHLORIDE
     Indication: RASH

REACTIONS (3)
  - Mouth ulceration [Recovered/Resolved]
  - Drug-induced liver injury [Recovered/Resolved]
  - Thrombocytopenia [Recovered/Resolved]
